FAERS Safety Report 5105718-3 (Version None)
Quarter: 2006Q3

REPORT INFORMATION
  Report Type: 
  Country: None (occurrence: None)
  Receive Date: 20060915
  Receipt Date: 20060905
  Transmission Date: 20061208
  Serious: Yes (Hospitalization)
  Sender: FDA-Public Use
  Company Number: RU-SANOFI-SYNTHELABO-A01200607316

PATIENT
  Age: 65 Year
  Sex: Female
  Weight: 78 kg

DRUGS (3)
  1. TROMBO-ASS [Concomitant]
     Indication: DRUG USE FOR UNKNOWN INDICATION
     Route: 065
     Dates: start: 20060618
  2. CAVINTON [Concomitant]
     Indication: ENCEPHALOPATHY
     Dosage: UNK
     Route: 042
     Dates: start: 20060801
  3. PLAVIX [Suspect]
     Indication: DRUG USE FOR UNKNOWN INDICATION
     Route: 048
     Dates: start: 20060618, end: 20060822

REACTIONS (2)
  - ASTHENIA [None]
  - VENA CAVA THROMBOSIS [None]
